FAERS Safety Report 19692534 (Version 1)
Quarter: 2021Q3

REPORT INFORMATION
  Report Type: Spontaneous
  Country: US (occurrence: US)
  Receive Date: 20210812
  Receipt Date: 20210812
  Transmission Date: 20211014
  Serious: Yes (Hospitalization)
  Sender: FDA-Public Use
  Company Number: US-PFIZER INC-202101013496

PATIENT
  Age: 77 Year
  Sex: Female

DRUGS (2)
  1. EFFEXOR XR [Suspect]
     Active Substance: VENLAFAXINE HYDROCHLORIDE
     Dosage: UNK
  2. VITAMIN E [Concomitant]
     Active Substance: .ALPHA.-TOCOPHEROL
     Dosage: UNK

REACTIONS (6)
  - Hyperhidrosis [Unknown]
  - Drug hypersensitivity [Unknown]
  - Retching [Unknown]
  - Heart rate increased [Unknown]
  - Feeling hot [Unknown]
  - Vomiting [Unknown]
